FAERS Safety Report 6528094-8 (Version None)
Quarter: 2010Q1

REPORT INFORMATION
  Report Type: 
  Country: None (occurrence: None)
  Receive Date: 20100106
  Receipt Date: 20091222
  Transmission Date: 20100710
  Serious: Yes (Hospitalization)
  Sender: FDA-Public Use
  Company Number: US-PFIZER INC-2009313671

PATIENT
  Sex: Female
  Weight: 68.4 kg

DRUGS (23)
  1. XANAX [Suspect]
     Indication: ANXIETY
     Dosage: 0.25 MG, 4X/DAY DAILY
     Route: 048
     Dates: start: 19961001
  2. GABAPENTIN [Suspect]
     Indication: NEUROPATHY PERIPHERAL
     Dosage: 600 MG, 3X/DAY DAILY
     Route: 048
     Dates: start: 20071011
  3. DOUBLE BLIND STUDY DRUG [Suspect]
     Indication: CARDIAC FAILURE ACUTE
     Dosage: 3.75 MG, 2X/DAY DAILY
     Dates: start: 20090519, end: 20090521
  4. DOUBLE BLIND STUDY DRUG [Suspect]
     Indication: RENAL IMPAIRMENT
  5. RESTORIL [Suspect]
     Indication: INSOMNIA
     Dosage: 15 MG AT BEDTIME
     Route: 048
     Dates: start: 20080710
  6. DARVOCET-N 100 [Concomitant]
     Indication: PAIN
     Dosage: 1 EVERY 6 HOURS AS NEEDED
     Dates: start: 20050120
  7. COREG [Concomitant]
     Dosage: 3.125 MG, UNK
     Dates: start: 20080710
  8. PROTONIX [Concomitant]
     Dosage: 40 MG, DAILY
     Dates: start: 20080710
  9. LEVAQUIN [Concomitant]
     Dosage: 500 MG, DAILY
     Dates: start: 20090521, end: 20090523
  10. VANCOMYCIN [Concomitant]
     Dates: start: 20090523, end: 20090528
  11. ZYVOX [Concomitant]
     Dosage: 600 MG DAILY
     Dates: start: 20090527, end: 20090530
  12. LASIX [Concomitant]
     Route: 042
     Dates: start: 20090518, end: 20090518
  13. SOLU-MEDROL [Concomitant]
     Dosage: 125 MG, UNK
     Route: 042
     Dates: start: 20090523, end: 20090523
  14. NITROGLYCERIN [Concomitant]
     Dosage: 1 EVERY 8 HOURS
     Dates: start: 20090518, end: 20090528
  15. MYSOLINE [Concomitant]
     Dosage: 25 MG,  HS (AT BED TIME)
     Dates: start: 20090421
  16. AMIODARONE [Concomitant]
     Dosage: 200 MG DAILY
     Dates: start: 20090421
  17. ADVAIR DISKUS 100/50 [Concomitant]
     Dosage: 250/50 1 INHALATION 2X/DAY
     Route: 055
     Dates: start: 20080710
  18. LEXAPRO [Concomitant]
     Dosage: 20 MG DAIILY
     Dates: start: 20080710
  19. PLAVIX [Concomitant]
     Dosage: 75 MG DAILY
     Dates: start: 20070107
  20. FUROSEMIDE [Concomitant]
     Dosage: 40 MG DAILY
     Dates: start: 19970408
  21. ATROVENT [Concomitant]
     Dosage: 2 INHALATIONS, 4X/DAY
     Dates: start: 19970403
  22. ALBUTEROL [Concomitant]
     Dosage: 2 INHALATIONS EVERY 4 HOUS, AS NEEDED.
     Dates: start: 19970403
  23. CITALOPRAM [Concomitant]
     Dosage: 20 MG DAILY
     Dates: start: 20080710

REACTIONS (2)
  - FALL [None]
  - UPPER LIMB FRACTURE [None]
